FAERS Safety Report 8098684-2 (Version None)
Quarter: 2012Q1

REPORT INFORMATION
  Report Type: 
  Country: None (occurrence: None)
  Receive Date: 20120129
  Receipt Date: 20111027
  Transmission Date: 20120608
  Serious: No
  Sender: FDA-Public Use
  Company Number: US-ABBOTT-11P-163-0868944-00

PATIENT
  Age: 64 Year
  Sex: Female

DRUGS (8)
  1. LIBRAX [Concomitant]
     Indication: CROHN'S DISEASE
  2. PROTONICS [Concomitant]
     Indication: CROHN'S DISEASE
  3. ENTOCORT EC [Concomitant]
     Indication: CROHN'S DISEASE
  4. ASACOL [Concomitant]
     Indication: CROHN'S DISEASE
  5. ENEMA [Concomitant]
     Indication: CROHN'S DISEASE
  6. CRESTOR [Concomitant]
     Indication: PRODUCT USED FOR UNKNOWN INDICATION
  7. HUMIRA [Suspect]
     Indication: CROHN'S DISEASE
     Dates: start: 20110301
  8. TOPROL-XL [Concomitant]
     Indication: PRODUCT USED FOR UNKNOWN INDICATION

REACTIONS (1)
  - CONTUSION [None]
